FAERS Safety Report 6958303-2 (Version None)
Quarter: 2010Q3

REPORT INFORMATION
  Report Type: 
  Country: None (occurrence: None)
  Receive Date: 20100831
  Receipt Date: 20100825
  Transmission Date: 20110219
  Serious: Yes (Death)
  Sender: FDA-Public Use
  Company Number: A0877895A

PATIENT
  Age: 67 Year
  Sex: Female

DRUGS (2)
  1. EPZICOM [Suspect]
     Indication: HIV INFECTION
     Dosage: 3TAB PER DAY
     Route: 048
     Dates: start: 20050101
  2. REYATAZ [Concomitant]

REACTIONS (1)
  - MYOCARDIAL INFARCTION [None]
